FAERS Safety Report 9765272 (Version 1)
Quarter: 2013Q4

REPORT INFORMATION
  Report Type: Spontaneous
  Country: US (occurrence: None)
  Receive Date: 20131216
  Receipt Date: 20131216
  Transmission Date: 20140711
  Serious: Yes (Disabling)
  Sender: FDA-Public Use
  Company Number: None

PATIENT
  Age: 65 Year
  Sex: Female
  Weight: 74.84 kg

DRUGS (2)
  1. BACLOFEN [Suspect]
     Indication: MUSCLE SPASMS
     Dosage: 1 TABLET ONCE DAILY
     Dates: start: 20130806, end: 20131211
  2. BACLOFEN [Suspect]
     Indication: MUSCLE SPASMS
     Dosage: 1 TABLET ONCE DAILY
     Dates: start: 20130806, end: 20131211

REACTIONS (32)
  - Insomnia [None]
  - Chromaturia [None]
  - Chest pain [None]
  - Vision blurred [None]
  - Dyspnoea [None]
  - Dyspnoea [None]
  - Dizziness [None]
  - Dizziness [None]
  - Nausea [None]
  - Asthenia [None]
  - Muscular weakness [None]
  - Abdominal pain [None]
  - Abdominal discomfort [None]
  - Abdominal pain upper [None]
  - Abdominal discomfort [None]
  - Constipation [None]
  - Diarrhoea [None]
  - Micturition urgency [None]
  - Urinary incontinence [None]
  - Headache [None]
  - Decreased appetite [None]
  - Myalgia [None]
  - Arthralgia [None]
  - Paraesthesia [None]
  - Hypoaesthesia [None]
  - Hypoaesthesia [None]
  - Palpitations [None]
  - Nasal congestion [None]
  - Insomnia [None]
  - Fatigue [None]
  - Weight increased [None]
  - Malaise [None]
